FAERS Safety Report 7445802-2 (Version None)
Quarter: 2011Q2

REPORT INFORMATION
  Report Type: 
  Country: None (occurrence: None)
  Receive Date: 20110429
  Receipt Date: 20110419
  Transmission Date: 20111010
  Serious: Yes (Other)
  Sender: FDA-Public Use
  Company Number: HR-ABBOTT-11P-216-0720424-00

PATIENT
  Age: 20 Year
  Sex: Male

DRUGS (2)
  1. METHYLPHENOBARBITAL [Interacting]
     Indication: PRODUCT USED FOR UNKNOWN INDICATION
  2. DEPAKENE [Suspect]
     Indication: EPILEPSY
     Dosage: DAILY DOSE: 1250MG
     Route: 048
     Dates: start: 20060101

REACTIONS (2)
  - DRUG INTERACTION [None]
  - OSTEOPENIA [None]
